FAERS Safety Report 12862701 (Version 5)
Quarter: 2018Q2

REPORT INFORMATION
  Report Type: Report from Study
  Country: None (occurrence: GB)
  Receive Date: 20161019
  Receipt Date: 20180614
  Transmission Date: 20180711
  Serious: Yes (Death)
  Sender: FDA-Public Use
  Company Number: GB-ABBVIE-16K-167-1756178-00

PATIENT
  Sex: Female

DRUGS (1)
  1. HUMIRA [Suspect]
     Active Substance: ADALIMUMAB
     Indication: RHEUMATOID ARTHRITIS
     Route: 058
     Dates: start: 20050510, end: 20060524

REACTIONS (4)
  - Myocardial ischaemia [Fatal]
  - Rheumatoid arthritis [Fatal]
  - Pneumonia [Fatal]
  - Cerebrovascular accident [Fatal]
